FAERS Safety Report 11941046 (Version 1)
Quarter: 2016Q1

REPORT INFORMATION
  Report Type: Spontaneous
  Country: US (occurrence: US)
  Receive Date: 20160122
  Receipt Date: 20160122
  Transmission Date: 20160526
  Serious: Yes (Hospitalization)
  Sender: FDA-Public Use
  Company Number: US-ABBVIE-16P-163-1543016-00

PATIENT
  Age: 24 Month
  Sex: Male

DRUGS (2)
  1. SABRIL [Interacting]
     Active Substance: VIGABATRIN
     Indication: INFANTILE SPASMS
     Route: 065
     Dates: start: 201408
  2. DEPAKINE [Suspect]
     Active Substance: VALPROATE SODIUM
     Indication: SEIZURE
     Route: 065

REACTIONS (4)
  - Seizure [Recovered/Resolved]
  - Drug interaction [Unknown]
  - Status epilepticus [Recovered/Resolved]
  - Drug level decreased [Unknown]

NARRATIVE: CASE EVENT DATE: 20150830
